FAERS Safety Report 9870615 (Version 2)
Quarter: 2014Q1

REPORT INFORMATION
  Report Type: Spontaneous
  Country: TW (occurrence: TW)
  Receive Date: 20140205
  Receipt Date: 20140205
  Transmission Date: 20141002
  Serious: Yes (Death, Other)
  Sender: FDA-Public Use
  Company Number: TW-SA-THYM-1001134

PATIENT
  Age: 10 Year
  Sex: Male

DRUGS (5)
  1. THYMOGLOBULINE [Suspect]
     Indication: ALLOGENIC BONE MARROW TRANSPLANTATION THERAPY
     Route: 042
  2. CYCLOPHOSPHAMIDE [Concomitant]
     Indication: BONE MARROW CONDITIONING REGIMEN
     Dosage: UNK UNK, UNK
  3. CICLOSPORIN [Concomitant]
     Indication: IMMUNOSUPPRESSION
     Dosage: UNK UNK, UNK
  4. METHOTREXATE [Concomitant]
     Indication: IMMUNOSUPPRESSION
     Dosage: UNK UNK, UNK
  5. CORTICOSTEROID NOS [Concomitant]
     Indication: IMMUNOSUPPRESSION
     Dosage: UNK UNK, UNK

REACTIONS (4)
  - Post transplant lymphoproliferative disorder [Fatal]
  - Gastrointestinal haemorrhage [Fatal]
  - Acute graft versus host disease [Fatal]
  - Cytomegalovirus infection [Fatal]
